FAERS Safety Report 7619214-2 (Version None)
Quarter: 2011Q3

REPORT INFORMATION
  Report Type: 
  Country: None (occurrence: None)
  Receive Date: 20110718
  Receipt Date: 20110702
  Transmission Date: 20111222
  Serious: Yes (Hospitalization, Other)
  Sender: FDA-Public Use
  Company Number: PHHY2011CA30573

PATIENT
  Sex: Female

DRUGS (1)
  1. ZOLEDRONOC ACID [Suspect]
     Indication: OSTEOPOROSIS
     Dosage: 5 MG, UNK
     Route: 042
     Dates: start: 20110408

REACTIONS (13)
  - BLOOD GLUCOSE ABNORMAL [None]
  - BLOOD LACTIC ACID INCREASED [None]
  - BONE PAIN [None]
  - NECK PAIN [None]
  - BACK PAIN [None]
  - CEREBRAL HAEMORRHAGE [None]
  - TREMOR [None]
  - CHILLS [None]
  - HEADACHE [None]
  - HELICOBACTER INFECTION [None]
  - NAUSEA [None]
  - CHEST PAIN [None]
  - MENINGIOMA [None]
